FAERS Safety Report 10086101 (Version 1)
Quarter: 2014Q2

REPORT INFORMATION
  Report Type: Spontaneous
  Country: US (occurrence: None)
  Receive Date: 20140415
  Receipt Date: 20140415
  Transmission Date: 20141212
  Serious: Yes (Hospitalization)
  Sender: FDA-Public Use
  Company Number: 08-AUR-03408

PATIENT
  Age: 85 Year
  Sex: Female

DRUGS (2)
  1. SIMVASTATIN (SIMVASTATIN) [Suspect]
     Indication: HYPERCHOLESTEROLAEMIA
     Dosage: 80MG (80MG, 1 IN 1 D), ORAL 3 WEEKS
     Route: 048
  2. L-THYROXINE (LEVOTHYROXINE) [Suspect]
     Indication: PRODUCT USED FOR UNKNOWN INDICATION
     Dosage: 100 MCG (100 MCG, 1 IN 1D

REACTIONS (8)
  - Myalgia [None]
  - Muscular weakness [None]
  - Weight bearing difficulty [None]
  - Renal impairment [None]
  - Liver disorder [None]
  - Blood creatine phosphokinase increased [None]
  - Blood thyroid stimulating hormone increased [None]
  - Myopathy [None]
